FAERS Safety Report 10665947 (Version 1)
Quarter: 2014Q4

REPORT INFORMATION
  Report Type: Other
  Country: GB (occurrence: GB)
  Receive Date: 20141219
  Receipt Date: 20141219
  Transmission Date: 20150529
  Serious: Yes (Hospitalization)
  Sender: FDA-Public Use
  Company Number: GB-SHIRE-GB201409034

PATIENT
  Sex: Female

DRUGS (1)
  1. VPRIV [Suspect]
     Active Substance: VELAGLUCERASE ALFA
     Indication: GAUCHER^S DISEASE
     Dosage: 4000 UNITS, 1X/2WKS, FORTNIGHTLY
     Route: 041

REACTIONS (4)
  - Feeling abnormal [Unknown]
  - Liver function test abnormal [Unknown]
  - Flat affect [Unknown]
  - Malaise [Unknown]
